FAERS Safety Report 23317758 (Version 1)
Quarter: 2023Q4

REPORT INFORMATION
  Report Type: Spontaneous
  Country: US (occurrence: None)
  Receive Date: 20231219
  Receipt Date: 20231219
  Transmission Date: 20240109
  Serious: No
  Sender: FDA-Public Use
  Company Number: US-ROCHE-3384877

PATIENT
  Sex: Male

DRUGS (1)
  1. GAZYVA [Suspect]
     Active Substance: OBINUTUZUMAB
     Indication: Leukaemia
     Dosage: ONCE EVERY 29 DAYS MIXED IN A 250ML NS BAG - NORMAL SALINE
     Route: 042
     Dates: start: 20230705

REACTIONS (2)
  - Memory impairment [Not Recovered/Not Resolved]
  - Underdose [Unknown]

NARRATIVE: CASE EVENT DATE: 20230705
